FAERS Safety Report 11348162 (Version 1)
Quarter: 2015Q3

REPORT INFORMATION
  Report Type: Spontaneous
  Country: DE (occurrence: DE)
  Receive Date: 20150806
  Receipt Date: 20150806
  Transmission Date: 20151125
  Serious: Yes (Other)
  Sender: FDA-Public Use
  Company Number: DE-TEVA-583513GER

PATIENT
  Age: 83 Year
  Sex: Male

DRUGS (1)
  1. PREGABALIN ABZ 50 MG HARTKAPSELN [Suspect]
     Active Substance: PREGABALIN
     Dosage: 50 MILLIGRAM DAILY;
     Route: 048
     Dates: end: 20150724

REACTIONS (3)
  - Hyperaesthesia [Not Recovered/Not Resolved]
  - Deafness [Not Recovered/Not Resolved]
  - Pain [Not Recovered/Not Resolved]

NARRATIVE: CASE EVENT DATE: 20150717
